FAERS Safety Report 11929194 (Version 3)
Quarter: 2017Q1

REPORT INFORMATION
  Report Type: Spontaneous
  Country: GB (occurrence: GB)
  Receive Date: 20160120
  Receipt Date: 20170123
  Transmission Date: 20170428
  Serious: Yes (Life-Threatening, Hospitalization)
  Sender: FDA-Public Use
  Company Number: GB-DRREDDYS-GER/UKI/16/0055863

PATIENT
  Age: 72 Year
  Sex: Male

DRUGS (16)
  1. DEPO-MEDRONE WITH LIDOCAINE [Concomitant]
     Active Substance: LIDOCAINE HYDROCHLORIDE\METHYLPREDNISOLONE ACETATE
     Indication: PRODUCT USED FOR UNKNOWN INDICATION
     Dosage: INJECTION INTO RIGHT KNEE
     Dates: start: 20151012, end: 20151012
  2. DEXAMETHASONE. [Concomitant]
     Active Substance: DEXAMETHASONE
     Indication: CHEMOTHERAPY
     Dosage: PRE-CHEMOTHERAPY
     Dates: start: 20151221, end: 20151223
  3. DOXYCYCLINE. [Concomitant]
     Active Substance: DOXYCYCLINE
     Indication: PRODUCT USED FOR UNKNOWN INDICATION
     Dosage: TWO TO BE TAKEN ON THE FIRST DAY THEN ONE TO BE TAKEN EACH DAY
     Dates: start: 20151012
  4. LANSOPRAZOLE. [Concomitant]
     Active Substance: LANSOPRAZOLE
     Indication: PRODUCT USED FOR UNKNOWN INDICATION
  5. VENTOLIN [Concomitant]
     Active Substance: ALBUTEROL SULFATE
     Indication: PRODUCT USED FOR UNKNOWN INDICATION
     Dosage: 200MICROGRAMS/DOSE ACCUHALER. ONE DOSE UP TO FOUR TIMES A DAY - ALSO USES A EASYHALER
     Route: 055
  6. NINTEDANIB [Suspect]
     Active Substance: NINTEDANIB
     Indication: LUNG ADENOCARCINOMA
     Dosage: INTENDED FOR 20 DAY COURSE
     Route: 048
     Dates: start: 20151201, end: 20151209
  7. SIMPLE LINCTUS [Concomitant]
     Active Substance: AMARANTH\CHLOROFORM\CITRIC ACID MONOHYDRATE\PIMPINELLA ANISUM WHOLE
     Indication: PRODUCT USED FOR UNKNOWN INDICATION
     Dates: start: 20151027
  8. FOSTAIR [Concomitant]
     Active Substance: BECLOMETHASONE\FORMOTEROL
     Indication: PRODUCT USED FOR UNKNOWN INDICATION
     Dosage: PUFFS. 100MICROGRAMS/DOSE/6MICROGRAMS/DOSE
     Route: 055
  9. PARACETAMOL [Concomitant]
     Active Substance: ACETAMINOPHEN
     Indication: PRODUCT USED FOR UNKNOWN INDICATION
     Dosage: 1-2, 4 TIMES A DAY
  10. SENNA [Concomitant]
     Active Substance: SENNA LEAF\SENNOSIDES\SENNOSIDES A AND B
     Indication: CONSTIPATION
     Dosage: 1 OR 2 AT NIGHT.
  11. GALEN LTD SALINE [Concomitant]
     Indication: PRODUCT USED FOR UNKNOWN INDICATION
  12. SIMVASTATIN. [Concomitant]
     Active Substance: SIMVASTATIN
     Indication: PRODUCT USED FOR UNKNOWN INDICATION
     Dosage: AT NIGHT.
  13. OXYNORM [Concomitant]
     Active Substance: OXYCODONE HYDROCHLORIDE
     Indication: PAIN
     Dates: start: 20141121
  14. DOCETAXEL. [Suspect]
     Active Substance: DOCETAXEL
     Indication: LUNG ADENOCARCINOMA
     Dosage: INTENDED FOR 20 DAY COURSE
     Route: 042
     Dates: start: 20151201, end: 20151209
  15. ACLIDINIUM BROMIDE [Concomitant]
     Active Substance: ACLIDINIUM BROMIDE
     Indication: PRODUCT USED FOR UNKNOWN INDICATION
     Dosage: 375MICROGRAMS/DOSE
     Route: 055
  16. OXYCONTIN [Concomitant]
     Active Substance: OXYCODONE HYDROCHLORIDE
     Indication: PRODUCT USED FOR UNKNOWN INDICATION
     Dates: start: 20140620

REACTIONS (9)
  - Hiccups [Unknown]
  - Diarrhoea [Recovered/Resolved]
  - Neutrophil count decreased [Recovering/Resolving]
  - Lung consolidation [Unknown]
  - Pleural effusion [Unknown]
  - Malaise [Unknown]
  - Neutropenic sepsis [Recovered/Resolved]
  - Mouth ulceration [Recovering/Resolving]
  - Lethargy [Unknown]

NARRATIVE: CASE EVENT DATE: 20151209
